FAERS Safety Report 13455581 (Version 1)
Quarter: 2017Q2

REPORT INFORMATION
  Report Type: Spontaneous
  Country: US (occurrence: CA)
  Receive Date: 20170419
  Receipt Date: 20170419
  Transmission Date: 20170830
  Serious: Yes (Other)
  Sender: FDA-Public Use
  Company Number: US-SAOL THERAPEUTICS-2017SAO00499

PATIENT

DRUGS (2)
  1. BACLOFEN. [Suspect]
     Active Substance: BACLOFEN
     Dosage: 713 ?G, \DAY
     Route: 037
  2. BACLOFEN. [Suspect]
     Active Substance: BACLOFEN
     Dosage: 96 ?G, \DAY
     Route: 037

REACTIONS (3)
  - Musculoskeletal stiffness [Unknown]
  - Device infusion issue [Not Recovered/Not Resolved]
  - Device battery issue [Unknown]

NARRATIVE: CASE EVENT DATE: 2016
